FAERS Safety Report 11591182 (Version 1)
Quarter: 2015Q4

REPORT INFORMATION
  Report Type: Spontaneous
  Country: US (occurrence: US)
  Receive Date: 20151004
  Receipt Date: 20151004
  Transmission Date: 20160304
  Serious: No
  Sender: FDA-Public Use
  Company Number: US-APOTEX-2015AP010013

PATIENT

DRUGS (1)
  1. FENTANYL TRANSDERMAL SYSTEM [Suspect]
     Active Substance: FENTANYL
     Indication: PAIN
     Dosage: 1 DF, Q.O.D.
     Route: 065

REACTIONS (4)
  - Drug ineffective [Unknown]
  - Product substitution issue [Unknown]
  - Product adhesion issue [Unknown]
  - Breakthrough pain [Unknown]
